FAERS Safety Report 21186076 (Version 1)
Quarter: 2022Q3

REPORT INFORMATION
  Report Type: Report from Study
  Country: ES (occurrence: ES)
  Receive Date: 20220808
  Receipt Date: 20220808
  Transmission Date: 20221027
  Serious: Yes (Other)
  Sender: FDA-Public Use
  Company Number: None

PATIENT
  Age: 68 Year
  Sex: Male

DRUGS (1)
  1. SIMPONI [Suspect]
     Active Substance: GOLIMUMAB
     Indication: Rheumatoid arthritis
     Dosage: 50MG / 4 WEEKS
     Route: 058
     Dates: start: 20180912

REACTIONS (1)
  - Mucocutaneous leishmaniasis [Recovered/Resolved]

NARRATIVE: CASE EVENT DATE: 20210915
